FAERS Safety Report 25948879 (Version 1)
Quarter: 2025Q4

REPORT INFORMATION
  Report Type: Spontaneous
  Country: TR (occurrence: TR)
  Receive Date: 20251022
  Receipt Date: 20251022
  Transmission Date: 20260118
  Serious: Yes (Death, Hospitalization, Other)
  Sender: AMGEN
  Company Number: TR-AMGEN-TURSP2025204889

PATIENT
  Age: 60 Year
  Sex: Female

DRUGS (7)
  1. BEVACIZUMAB [Suspect]
     Active Substance: BEVACIZUMAB
     Indication: Rectal cancer metastatic
     Dosage: FIRST-LINE TREATMENT
     Route: 065
  2. FLUOROURACIL [Concomitant]
     Active Substance: FLUOROURACIL
     Indication: Rectal cancer metastatic
     Dosage: FIRST-LINE TREATMENT
     Route: 065
  3. LEUCOVORIN [Concomitant]
     Active Substance: LEUCOVORIN\LEUCOVORIN CALCIUM
     Indication: Rectal cancer metastatic
     Dosage: FIRST-LINE TREATMENT
     Route: 065
  4. OXALIPLATIN [Concomitant]
     Active Substance: OXALIPLATIN
     Indication: Rectal cancer metastatic
     Dosage: FIRST-LINE TREATMENT
     Route: 065
  5. LEUCOVORIN CALCIUM [Concomitant]
     Active Substance: LEUCOVORIN CALCIUM
     Indication: Rectal cancer metastatic
     Dosage: SECOND-LINE TREATMENT
     Route: 065
  6. IRINOTECAN HYDROCHLORIDE [Concomitant]
     Active Substance: IRINOTECAN HYDROCHLORIDE
     Indication: Rectal cancer metastatic
     Dosage: SECOND-LINE TREATMENT
     Route: 065
  7. AFLIBERCEPT [Concomitant]
     Active Substance: AFLIBERCEPT
     Indication: Rectal cancer metastatic
     Dosage: SECOND-LINE TREATMENT
     Route: 065

REACTIONS (5)
  - Death [Fatal]
  - Adenocarcinoma of colon [Unknown]
  - Ill-defined disorder [Unknown]
  - Pneumonia [Unknown]
  - Sepsis [Unknown]
